FAERS Safety Report 24331619 (Version 1)
Quarter: 2024Q3

REPORT INFORMATION
  Report Type: Report from Study
  Country: US (occurrence: US)
  Receive Date: 20240918
  Receipt Date: 20240918
  Transmission Date: 20241016
  Serious: Yes (Hospitalization)
  Sender: ABBVIE
  Company Number: US-ABBVIE-5923442

PATIENT
  Sex: Female

DRUGS (1)
  1. VENCLEXTA [Suspect]
     Active Substance: VENETOCLAX
     Indication: Chronic lymphocytic leukaemia
     Dosage: TAKE 1 TABLET BY MOUTH DAILY WITH FOOD AND WATER
     Route: 048
     Dates: end: 20240901

REACTIONS (6)
  - COVID-19 [Unknown]
  - White blood cell disorder [Unknown]
  - Asthenia [Unknown]
  - Fatigue [Unknown]
  - Urinary tract infection [Recovered/Resolved]
  - Drug intolerance [Unknown]
